FAERS Safety Report 9394176 (Version 2)
Quarter: 2013Q3

REPORT INFORMATION
  Report Type: Spontaneous
  Country: US (occurrence: US)
  Receive Date: 20130711
  Receipt Date: 20130826
  Transmission Date: 20140515
  Serious: No
  Sender: FDA-Public Use
  Company Number: US-009507513-1307USA005335

PATIENT
  Age: 51 Year
  Sex: Female
  Weight: 65.76 kg

DRUGS (2)
  1. CLARITIN [Suspect]
     Indication: SNEEZING
     Dosage: 10 MG, BID
     Route: 048
     Dates: start: 20130601, end: 20130701
  2. CLARITIN [Suspect]
     Indication: LACRIMATION INCREASED

REACTIONS (2)
  - Drug ineffective [Unknown]
  - Overdose [Unknown]
